FAERS Safety Report 8389071-8 (Version None)
Quarter: 2012Q2

REPORT INFORMATION
  Report Type: 
  Country: None (occurrence: None)
  Receive Date: 20120528
  Receipt Date: 20120519
  Transmission Date: 20120825
  Serious: Yes (Death, Disabling, Other)
  Sender: FDA-Public Use
  Company Number: PHHY2011SD102782

PATIENT
  Sex: Female
  Weight: 55 kg

DRUGS (1)
  1. GLEEVEC [Suspect]
     Indication: CHRONIC MYELOID LEUKAEMIA
     Dosage: 400 MG, DAILY
     Dates: start: 20110728, end: 20110824

REACTIONS (3)
  - THROMBOCYTOPENIA [None]
  - CHRONIC MYELOID LEUKAEMIA TRANSFORMATION [None]
  - ANAEMIA [None]
